FAERS Safety Report 8295569-3 (Version None)
Quarter: 2012Q2

REPORT INFORMATION
  Report Type: 
  Country: None (occurrence: None)
  Receive Date: 20120418
  Receipt Date: 20120412
  Transmission Date: 20120825
  Serious: Yes (Other)
  Sender: FDA-Public Use
  Company Number: US-BAYER-2012-037190

PATIENT
  Sex: Female

DRUGS (2)
  1. YASMIN [Suspect]
     Dosage: UNK
     Dates: start: 20080401, end: 20100831
  2. YAZ [Suspect]
     Dosage: UNK
     Dates: start: 20080401, end: 20100831

REACTIONS (5)
  - GASTROINTESTINAL HYPOMOTILITY [None]
  - INJURY [None]
  - PAIN [None]
  - GALLBLADDER DISORDER [None]
  - PULMONARY EMBOLISM [None]
